FAERS Safety Report 5497956-5 (Version None)
Quarter: 2007Q4

REPORT INFORMATION
  Report Type: 
  Country: None (occurrence: None)
  Receive Date: 20071025
  Receipt Date: 20071017
  Transmission Date: 20080405
  Serious: Yes (Death, Other)
  Sender: FDA-Public Use
  Company Number: PHBS2007JP16939

PATIENT
  Age: 57 Year
  Sex: Male

DRUGS (9)
  1. SANDIMMUNE [Suspect]
     Indication: STEM CELL TRANSPLANT
     Dosage: 3 MG/KG/DAY
     Route: 042
     Dates: start: 20051128, end: 20060201
  2. ENDOXAN [Concomitant]
     Indication: STEM CELL TRANSPLANT
     Route: 065
  3. METHOTREXATE [Concomitant]
     Indication: STEM CELL TRANSPLANT
  4. PROGRAF [Concomitant]
     Indication: STEM CELL TRANSPLANT
  5. THIOTEPA [Concomitant]
  6. CYCLOPHOSPHAMIDE [Concomitant]
  7. IRRADIATION [Concomitant]
  8. CELLCEPT [Concomitant]
     Indication: STEM CELL TRANSPLANT
     Route: 048
  9. STEROIDS NOS [Concomitant]
     Indication: STEM CELL TRANSPLANT
     Route: 065

REACTIONS (10)
  - ACUTE GRAFT VERSUS HOST DISEASE [None]
  - ASPERGILLOSIS [None]
  - BLOOD PRESSURE DECREASED [None]
  - CARDIAC HYPERTROPHY [None]
  - HEPATIC FUNCTION ABNORMAL [None]
  - LUNG ABSCESS [None]
  - MYOCARDITIS MYCOTIC [None]
  - RASH [None]
  - RENAL ABSCESS [None]
  - SINUS TACHYCARDIA [None]
